FAERS Safety Report 5238800-0 (Version None)
Quarter: 2007Q1

REPORT INFORMATION
  Report Type: 
  Country: None (occurrence: None)
  Receive Date: 20070215
  Receipt Date: 20070209
  Transmission Date: 20070707
  Serious: Yes (Hospitalization, Disabling, Other)
  Sender: FDA-Public Use
  Company Number: US-PFIZER INC-2006142976

PATIENT
  Sex: Female
  Weight: 53.5 kg

DRUGS (9)
  1. CELEBREX [Suspect]
     Indication: BACK PAIN
     Route: 048
  2. CELEBREX [Suspect]
     Indication: NECK PAIN
  3. CELEBREX [Suspect]
     Indication: PAIN IN EXTREMITY
  4. LIPITOR [Concomitant]
     Route: 048
  5. SKELAXIN [Concomitant]
     Route: 048
  6. ASPIRIN [Concomitant]
     Route: 048
  7. PREVACID [Concomitant]
     Route: 048
  8. PREMARIN [Concomitant]
     Route: 048
  9. LASIX [Concomitant]
     Route: 048

REACTIONS (2)
  - LUNG DISORDER [None]
  - PULMONARY EMBOLISM [None]
